FAERS Safety Report 11301243 (Version 1)
Quarter: 2015Q3

REPORT INFORMATION
  Report Type: Spontaneous
  Country: DE (occurrence: None)
  Receive Date: 20150722
  Receipt Date: 20150722
  Transmission Date: 20151125
  Serious: Yes (Death)
  Sender: FDA-Public Use
  Company Number: COR_00328_2015

PATIENT
  Age: 37 Year
  Sex: Female

DRUGS (6)
  1. METHOTREXATE (METHOTREXATE) [Suspect]
     Active Substance: METHOTREXATE
     Indication: CHORIOCARCINOMA
     Dosage: (9 COURSE), (3 COURSES), (4-6 COURSES)
     Dates: start: 201012, end: 201012
  2. CYCLOPHOSPHAMIDE (CYCLOPHOSPHAMIDE) [Suspect]
     Active Substance: CYCLOPHOSPHAMIDE
     Indication: CHORIOCARCINOMA
     Dosage: (9 COURSE), (3 COURSES), (4-6 COURSES)
     Dates: start: 201012, end: 201012
  3. VINCRISTINE [Suspect]
     Active Substance: VINCRISTINE
     Indication: CHORIOCARCINOMA
     Dosage: (9 COURSES) (3 COURSES) (4-6 COURSES)
     Dates: start: 201012, end: 201012
  4. CARBAMAZEPINE. [Concomitant]
     Active Substance: CARBAMAZEPINE
  5. ETOPOSIDE (ETOPOSIDE) [Suspect]
     Active Substance: ETOPOSIDE
     Indication: CHORIOCARCINOMA
     Dosage: 9 COURSES0, ( 3 COURSES), (4-6 COURSES)
     Dates: start: 201012, end: 201012
  6. ACTINOMYCIN D [Suspect]
     Active Substance: DACTINOMYCIN
     Dosage: (9 COURSES), (3 COURSES), (4-6 COURSES)
     Dates: start: 201012, end: 201012

REACTIONS (5)
  - Pancytopenia [None]
  - Vaginal haemorrhage [None]
  - Infection [None]
  - Tumour necrosis [None]
  - Hepatic failure [None]
